FAERS Safety Report 6160176-5 (Version None)
Quarter: 2009Q2

REPORT INFORMATION
  Report Type: 
  Country: None (occurrence: None)
  Receive Date: 20090420
  Receipt Date: 20090410
  Transmission Date: 20091009
  Serious: Yes (Death, Hospitalization)
  Sender: FDA-Public Use
  Company Number: A0779252A

PATIENT
  Age: 63 Year
  Sex: Male
  Weight: 181.8 kg

DRUGS (12)
  1. AVANDIA [Suspect]
     Indication: DIABETES MELLITUS
     Route: 048
     Dates: end: 20070213
  2. METFORMIN HCL [Concomitant]
  3. INSULIN [Concomitant]
  4. AMARYL [Concomitant]
  5. GLYBURIDE [Concomitant]
  6. TOPROL-XL [Concomitant]
  7. HYDROCHLOROTHIAZIDE [Concomitant]
  8. HYZAAR [Concomitant]
  9. ZESTRIL [Concomitant]
  10. LISINOPRIL [Concomitant]
  11. FUROSEMIDE [Concomitant]
  12. VERAPAMIL [Concomitant]

REACTIONS (4)
  - ACUTE MYOCARDIAL INFARCTION [None]
  - CORONARY ARTERY DISEASE [None]
  - PULMONARY HYPERTENSION [None]
  - RENAL FAILURE [None]
